FAERS Safety Report 9642086 (Version 1)
Quarter: 2013Q4

REPORT INFORMATION
  Report Type: Spontaneous
  Country: DE (occurrence: DE)
  Receive Date: 20131023
  Receipt Date: 20131023
  Transmission Date: 20140711
  Serious: Yes (Other)
  Sender: FDA-Public Use
  Company Number: GXKR2013DE003352

PATIENT
  Sex: 0

DRUGS (1)
  1. CLINDAMYCIN [Suspect]
     Indication: TONSILLITIS
     Route: 048

REACTIONS (1)
  - Liver injury [Unknown]
